FAERS Safety Report 8811859 (Version 1)
Quarter: 2012Q4

REPORT INFORMATION
  Report Type: Spontaneous
  Country: US (occurrence: None)
  Receive Date: 20120926
  Receipt Date: 20120926
  Transmission Date: 20130627
  Serious: Yes (Other)
  Sender: FDA-Public Use
  Company Number: None

PATIENT
  Sex: Female
  Weight: 56.7 kg

DRUGS (1)
  1. GIANVI [Suspect]

REACTIONS (3)
  - Migraine [None]
  - Dysmenorrhoea [None]
  - Activities of daily living impaired [None]
